FAERS Safety Report 22779238 (Version 4)
Quarter: 2023Q4

REPORT INFORMATION
  Report Type: Report from Study
  Country: GB (occurrence: GB)
  Receive Date: 20230802
  Receipt Date: 20231123
  Transmission Date: 20240110
  Serious: Yes (Other)
  Sender: FDA-Public Use
  Company Number: GB-IPSEN Group, Research and Development-2022-00999

PATIENT
  Age: 88 Year
  Sex: Female

DRUGS (1)
  1. LANREOTIDE ACETATE [Suspect]
     Active Substance: LANREOTIDE ACETATE
     Indication: Neuroendocrine tumour
     Dosage: 120MG/ 0.5 ML EVERY 28 DAYS
     Route: 058

REACTIONS (15)
  - Diverticulitis [Unknown]
  - Disorientation [Not Recovered/Not Resolved]
  - Balance disorder [Unknown]
  - Asthenia [Not Recovered/Not Resolved]
  - Headache [Unknown]
  - Abdominal pain [Not Recovered/Not Resolved]
  - Feeling cold [Unknown]
  - Blood pressure increased [Not Recovered/Not Resolved]
  - Pain [Not Recovered/Not Resolved]
  - Contusion [Unknown]
  - Joint swelling [Unknown]
  - Malaise [Unknown]
  - Abdominal pain [Unknown]
  - Tremor [Unknown]
  - Blood pressure increased [Unknown]
